FAERS Safety Report 7509649-0 (Version None)
Quarter: 2011Q2

REPORT INFORMATION
  Report Type: 
  Country: None (occurrence: None)
  Receive Date: 20110527
  Receipt Date: 20110517
  Transmission Date: 20111010
  Serious: Yes (Life-Threatening, Hospitalization)
  Sender: FDA-Public Use
  Company Number: US-JNJFOC-20110502011

PATIENT
  Sex: Male
  Weight: 83.4 kg

DRUGS (37)
  1. ABIRATERONE ACETATE [Suspect]
     Route: 048
     Dates: start: 20110218
  2. PHENERGAN HCL [Concomitant]
     Indication: URINARY TRACT INFECTION
     Route: 065
     Dates: start: 20110419
  3. LEVOTHYROXINE SODIUM [Concomitant]
     Indication: PRODUCT USED FOR UNKNOWN INDICATION
  4. LEVOFLOXACIN [Concomitant]
     Indication: PRODUCT USED FOR UNKNOWN INDICATION
     Route: 048
  5. HYTRIN [Concomitant]
     Indication: PRODUCT USED FOR UNKNOWN INDICATION
     Route: 048
  6. ABIRATERONE ACETATE [Suspect]
     Route: 048
     Dates: start: 20110422
  7. ZOSYN [Concomitant]
     Indication: URINARY TRACT INFECTION
     Route: 065
     Dates: start: 20110419
  8. ZOLPIDEM [Concomitant]
     Route: 048
  9. ABIRATERONE ACETATE [Suspect]
     Route: 048
     Dates: start: 20110414
  10. ROCEPHIN [Concomitant]
     Indication: URINARY TRACT INFECTION
     Route: 065
     Dates: start: 20110416
  11. ROCEPHIN [Concomitant]
     Route: 065
     Dates: start: 20110415
  12. ROCEPHIN [Concomitant]
     Route: 065
     Dates: start: 20110414
  13. MORPHINE [Concomitant]
     Route: 065
     Dates: start: 20110415
  14. PHENERGAN HCL [Concomitant]
     Route: 065
     Dates: start: 20110415
  15. POTASSIUM CITRATE [Concomitant]
     Indication: PRODUCT USED FOR UNKNOWN INDICATION
     Route: 048
  16. PREDNISONE [Suspect]
     Route: 048
     Dates: start: 20110426
  17. SODIUM CHLORIDE [Concomitant]
     Route: 065
     Dates: start: 20110414
  18. SODIUM CHLORIDE [Concomitant]
     Route: 065
     Dates: start: 20110416
  19. POTASSIUM CHLORIDE IN NORMAL SALINE [Concomitant]
     Route: 065
     Dates: start: 20110415
  20. ABIRATERONE ACETATE [Suspect]
     Indication: PROSTATE CANCER METASTATIC
     Route: 048
     Dates: start: 20110426
  21. PREDNISONE [Suspect]
     Indication: PROSTATE CANCER METASTATIC
     Route: 048
     Dates: start: 20110420
  22. ZOSYN [Concomitant]
     Route: 065
     Dates: start: 20110416
  23. LEUPROLIDE ACETATE [Concomitant]
     Indication: PRODUCT USED FOR UNKNOWN INDICATION
  24. POTASSIUM CHLORIDE IN NORMAL SALINE [Concomitant]
     Indication: URINARY TRACT INFECTION
     Route: 065
     Dates: start: 20110414
  25. POTASSIUM CHLORIDE IN NORMAL SALINE [Concomitant]
     Route: 065
     Dates: start: 20110419
  26. PREDNISONE [Suspect]
     Route: 048
     Dates: start: 20110218
  27. MORPHINE [Concomitant]
     Indication: URINARY TRACT INFECTION
     Route: 065
     Dates: start: 20110419
  28. LEVAQUIN [Concomitant]
     Indication: URINARY TRACT INFECTION
     Route: 065
     Dates: start: 20110414, end: 20110428
  29. DEMEROL [Concomitant]
     Indication: URINARY TRACT INFECTION
     Route: 065
     Dates: start: 20110414, end: 20110417
  30. MORPHINE [Concomitant]
     Route: 065
     Dates: start: 20110414
  31. PHENERGAN HCL [Concomitant]
     Route: 065
     Dates: start: 20110414
  32. PAXIL [Concomitant]
     Indication: PRODUCT USED FOR UNKNOWN INDICATION
     Route: 048
  33. OXYCODONE HCL [Concomitant]
     Indication: PRODUCT USED FOR UNKNOWN INDICATION
     Route: 048
  34. PREDNISONE [Suspect]
     Route: 048
     Dates: start: 20110414
  35. ZOSYN [Concomitant]
     Route: 065
     Dates: start: 20110414
  36. SODIUM CHLORIDE [Concomitant]
     Indication: URINARY TRACT INFECTION
     Route: 065
     Dates: start: 20110415
  37. OMEPRAZOLE [Concomitant]
     Indication: PRODUCT USED FOR UNKNOWN INDICATION
     Route: 048

REACTIONS (2)
  - PULMONARY EMBOLISM [None]
  - UROSEPSIS [None]
